FAERS Safety Report 20777107 (Version 1)
Quarter: 2022Q2

REPORT INFORMATION
  Report Type: Spontaneous
  Country: GB (occurrence: GB)
  Receive Date: 20220503
  Receipt Date: 20220503
  Transmission Date: 20220721
  Serious: Yes (Other)
  Sender: FDA-Public Use
  Company Number: None

PATIENT
  Age: 22 Year
  Sex: Female
  Weight: 46 kg

DRUGS (5)
  1. VENLAFAXINE [Suspect]
     Active Substance: VENLAFAXINE HYDROCHLORIDE
     Indication: Anxiety disorder
     Dosage: ONE TO BE TAKEN EACH DAY/TWICE A DAY.
     Dates: start: 20220324
  2. DULOXETINE [Concomitant]
     Active Substance: DULOXETINE
     Dates: start: 20220201, end: 20220317
  3. FEXOFENADINE [Concomitant]
     Active Substance: FEXOFENADINE HYDROCHLORIDE
     Indication: Lip swelling
     Dates: start: 20220128, end: 20220314
  4. PREDNISOLONE [Concomitant]
     Active Substance: PREDNISOLONE
     Dates: start: 20220128, end: 20220226
  5. VORTIOXETINE [Concomitant]
     Active Substance: VORTIOXETINE
     Indication: Anxiety disorder
     Dates: start: 20220317, end: 20220324

REACTIONS (2)
  - Angioedema [Recovering/Resolving]
  - Lip swelling [Unknown]

NARRATIVE: CASE EVENT DATE: 20220407
